FAERS Safety Report 8851369 (Version 1)
Quarter: 2012Q4

REPORT INFORMATION
  Report Type: 
  Country: BR (occurrence: BR)
  Receive Date: 20121022
  Receipt Date: 20121022
  Transmission Date: 20130627
  Serious: Yes (Other)
  Sender: FDA-Public Use
  Company Number: BR-AMGEN-BRASP2012065963

PATIENT
  Age: 67 Year
  Sex: Female
  Weight: 60 kg

DRUGS (5)
  1. ENBREL [Suspect]
     Indication: RHEUMATOID ARTHRITIS
     Dosage: 50 mg, once weekly
     Route: 058
     Dates: start: 201208
  2. CARBAMAZEPINE [Concomitant]
     Dosage: UNK UNK, UNK
  3. OMEPRAZOLE [Concomitant]
     Indication: HIATUS HERNIA
     Dosage: UNK UNK, UNK
  4. SINVASTACOR [Concomitant]
     Indication: BLOOD CHOLESTEROL ABNORMAL
     Dosage: UNK
  5. OSCAL D [Concomitant]
     Dosage: UNK UNK, UNK

REACTIONS (3)
  - Drug hypersensitivity [Unknown]
  - Erythema [Unknown]
  - Pruritus [Unknown]
